FAERS Safety Report 9726637 (Version 1)
Quarter: 2013Q4

REPORT INFORMATION
  Report Type: Spontaneous
  Country: US (occurrence: None)
  Receive Date: 20131202
  Receipt Date: 20131202
  Transmission Date: 20140711
  Serious: Yes (Death)
  Sender: FDA-Public Use
  Company Number: None

PATIENT
  Age: 74 Year
  Sex: Female
  Weight: 73.4 kg

DRUGS (8)
  1. ONDANSETRON [Suspect]
     Indication: NAUSEA
     Dosage: 4 MG, Q6-8H PRN N/V
     Route: 048
  2. ONDANSETRON [Suspect]
     Indication: VOMITING
     Dosage: 4 MG, Q6-8H PRN N/V
     Route: 048
  3. QUETIAPINE [Suspect]
     Indication: SCHIZOPHRENIA
     Dosage: 100MG QDAY
  4. SYNTHROID [Concomitant]
  5. VITAMIN D3 [Concomitant]
  6. FLUVOXAMINE [Concomitant]
  7. DONEPEZIL [Concomitant]
  8. MEMANTINE [Concomitant]

REACTIONS (11)
  - Cardiac arrest [None]
  - Arrhythmia [None]
  - Electrocardiogram QT prolonged [None]
  - Acute respiratory failure [None]
  - Pneumonia aspiration [None]
  - Coma [None]
  - Occult blood positive [None]
  - Schizophrenia [None]
  - Hypothyroidism [None]
  - Hyperglycaemia [None]
  - Sinusitis [None]
